FAERS Safety Report 10073819 (Version 2)
Quarter: 2014Q2

REPORT INFORMATION
  Report Type: Spontaneous
  Country: PT (occurrence: PT)
  Receive Date: 20140411
  Receipt Date: 20140501
  Transmission Date: 20141212
  Serious: Yes (Hospitalization, Other)
  Sender: FDA-Public Use
  Company Number: PT-009507513-1404PRT005962

PATIENT
  Age: 63 Year
  Sex: Female

DRUGS (4)
  1. ALENDRONATE SODIUM [Suspect]
     Indication: OSTEOPOROSIS
     Dosage: 70 MG, QW
  2. ALENDRONATE SODIUM [Suspect]
     Dosage: 10 MG, QD
     Route: 048
  3. CALCIUM (UNSPECIFIED) [Concomitant]
     Indication: OSTEOPOROSIS
     Dosage: 1200 MG/DAY
  4. VITAMIN D (UNSPECIFIED) [Concomitant]
     Indication: OSTEOPOROSIS
     Dosage: 250 IU, QD

REACTIONS (1)
  - Atypical femur fracture [Recovering/Resolving]
